FAERS Safety Report 7536759-4 (Version None)
Quarter: 2011Q2

REPORT INFORMATION
  Report Type: 
  Country: None (occurrence: None)
  Receive Date: 20110608
  Receipt Date: 20110608
  Transmission Date: 20111010
  Serious: Yes (Other)
  Sender: FDA-Public Use
  Company Number: None

PATIENT
  Age: 55 Year
  Sex: Female
  Weight: 81.6475 kg

DRUGS (1)
  1. CYMBALTA [Suspect]

REACTIONS (4)
  - RASH [None]
  - FEELING ABNORMAL [None]
  - PRURITUS [None]
  - NO THERAPEUTIC RESPONSE [None]
